FAERS Safety Report 7249977-X (Version None)
Quarter: 2011Q1

REPORT INFORMATION
  Report Type: 
  Country: None (occurrence: None)
  Receive Date: 20110128
  Receipt Date: 20101118
  Transmission Date: 20110831
  Serious: No
  Sender: FDA-Public Use
  Company Number: A0899095A

PATIENT
  Age: 41 Year
  Sex: Female

DRUGS (4)
  1. 4-AMINOPYRIDINE [Suspect]
     Indication: GAIT DISTURBANCE
     Dosage: 10MG TWICE PER DAY
     Route: 048
     Dates: start: 20100101
  2. OXYCONTIN [Concomitant]
  3. BACLOFEN [Concomitant]
  4. WELLBUTRIN XL [Suspect]
     Indication: DEPRESSION
     Dosage: 300MG PER DAY
     Route: 048
     Dates: start: 20100101

REACTIONS (1)
  - HYPERHIDROSIS [None]
